FAERS Safety Report 4849204-4 (Version None)
Quarter: 2005Q4

REPORT INFORMATION
  Report Type: 
  Country: None (occurrence: None)
  Receive Date: 20051209
  Receipt Date: 20051005
  Transmission Date: 20060501
  Serious: Yes (Hospitalization)
  Sender: FDA-Public Use
  Company Number: US-MERCK-0510USA04754

PATIENT
  Age: 32 Year
  Sex: Female
  Weight: 86 kg

DRUGS (1)
  1. VIOXX [Suspect]
     Indication: ARTHRALGIA
     Route: 048
     Dates: start: 19990101, end: 20040101

REACTIONS (4)
  - CARDIOVASCULAR DISORDER [None]
  - COLON INJURY [None]
  - COLON OPERATION [None]
  - GASTROINTESTINAL DISORDER [None]
